FAERS Safety Report 17858086 (Version 1)
Quarter: 2020Q2

REPORT INFORMATION
  Report Type: Report from Study
  Country: US (occurrence: US)
  Receive Date: 20200604
  Receipt Date: 20200604
  Transmission Date: 20200714
  Serious: Yes (Hospitalization)
  Sender: FDA-Public Use
  Company Number: US-BAXTER-2020BAX011268

PATIENT
  Age: 8 Year
  Sex: Male
  Weight: 30.4 kg

DRUGS (4)
  1. VINCRISTINE SULFATE. [Suspect]
     Active Substance: VINCRISTINE SULFATE
     Indication: EMBRYONAL RHABDOMYOSARCOMA
     Dosage: FIRST COURSE, TOTAL DOSE ADMINISTERED THIS COURSE: 5.1 MG
     Route: 042
     Dates: start: 20200221, end: 20200306
  2. CYCLOPHOSPHAMIDE FOR INJECTION, USP [Suspect]
     Active Substance: CYCLOPHOSPHAMIDE
     Indication: EMBRYONAL RHABDOMYOSARCOMA
     Dosage: FIRST COURSE, TOTAL DOSE ADMINISTERED THIS COURSE: 1350 MG
     Route: 042
     Dates: start: 20200221, end: 20200221
  3. TEMSIROLIMUS. [Suspect]
     Active Substance: TEMSIROLIMUS
     Indication: EMBRYONAL RHABDOMYOSARCOMA
     Dosage: FIRST COURSE, TOTAL DOSE ADMINISTERED THIS COURSE: 51 MG
     Route: 042
     Dates: start: 20200221, end: 20200306
  4. DACTINOMYCIN [Suspect]
     Active Substance: DACTINOMYCIN
     Indication: EMBRYONAL RHABDOMYOSARCOMA
     Dosage: FIRST COURSE, TOTAL DOSE ADMINISTERED THIS COURSE: 1.7 MG
     Route: 042
     Dates: start: 20200221, end: 20200221

REACTIONS (2)
  - Weight decreased [Recovering/Resolving]
  - Stomatitis [Recovered/Resolved]

NARRATIVE: CASE EVENT DATE: 20200306
